FAERS Safety Report 9852078 (Version 1)
Quarter: 2014Q1

REPORT INFORMATION
  Report Type: Spontaneous
  Country: US (occurrence: US)
  Receive Date: 20140129
  Receipt Date: 20140129
  Transmission Date: 20141002
  Serious: No
  Sender: FDA-Public Use
  Company Number: US-PFIZER INC-2014024662

PATIENT
  Age: 59 Year
  Sex: Female
  Weight: 83.9 kg

DRUGS (5)
  1. PREMARIN [Suspect]
     Indication: HORMONE REPLACEMENT THERAPY
     Dosage: 1.25 MG, 1X/DAY
     Route: 048
  2. EFFEXOR [Suspect]
     Indication: DEPRESSION
     Dosage: 75 MG, 2X/DAY
  3. EFFEXOR [Suspect]
     Dosage: 75 MG, 1X/DAY
  4. ATENOLOL [Concomitant]
     Indication: HYPERTENSION
     Dosage: 50 MG, 1X/DAY
  5. SULINDAC [Concomitant]
     Indication: ARTHRITIS
     Dosage: 200 MG, 1X/DAY

REACTIONS (5)
  - Asthenia [Unknown]
  - Tremor [Unknown]
  - Insomnia [Unknown]
  - Feeling abnormal [Unknown]
  - Intentional drug misuse [Unknown]
